FAERS Safety Report 8800442 (Version 1)
Quarter: 2012Q4

REPORT INFORMATION
  Report Type: 
  Country: US (occurrence: US)
  Receive Date: 20120921
  Receipt Date: 20120921
  Transmission Date: 20130627
  Serious: No
  Sender: FDA-Public Use
  Company Number: US-009507513-1209USA004484

PATIENT
  Sex: Male

DRUGS (3)
  1. VICTRELIS [Suspect]
     Indication: HEPATITIS C
     Dosage: 800 mg, three times a day
     Route: 048
     Dates: start: 20120724
  2. RIBAPAK [Suspect]
  3. PEGASYS [Suspect]

REACTIONS (1)
  - Fatigue [Unknown]
